FAERS Safety Report 12446402 (Version 2)
Quarter: 2016Q3

REPORT INFORMATION
  Report Type: Spontaneous
  Country: FR (occurrence: FR)
  Receive Date: 20160608
  Receipt Date: 20160706
  Transmission Date: 20161109
  Serious: Yes (Other)
  Sender: FDA-Public Use
  Company Number: FR-ACCORD-041379

PATIENT
  Age: 39 Year
  Sex: Male

DRUGS (2)
  1. ETOPOSIDE TEVA [Suspect]
     Active Substance: ETOPOSIDE
     Indication: ACUTE LYMPHOCYTIC LEUKAEMIA
     Dosage: STRENGTH: 150 MG/M2?FEW DROPS
     Route: 042
     Dates: start: 20160208, end: 20160208
  2. ONDANSETRON ACCORD [Suspect]
     Active Substance: ONDANSETRON
     Indication: PREMEDICATION
     Dosage: STRENGTH: 2 MG/ML
     Route: 042
     Dates: start: 20160208, end: 20160208

REACTIONS (3)
  - Atrial flutter [Recovered/Resolved]
  - Flushing [Recovered/Resolved]
  - Spinal pain [Recovered/Resolved]

NARRATIVE: CASE EVENT DATE: 20160208
